FAERS Safety Report 17152871 (Version 1)
Quarter: 2019Q4

REPORT INFORMATION
  Report Type: Report from Study
  Country: RU (occurrence: RU)
  Receive Date: 20191213
  Receipt Date: 20191213
  Transmission Date: 20200122
  Serious: Yes (Other)
  Sender: FDA-Public Use
  Company Number: RU-ASTRAZENECA-2019SF79341

PATIENT
  Age: 78 Year
  Sex: Male
  Weight: 78 kg

DRUGS (10)
  1. ASPIRIN. [Concomitant]
     Active Substance: ASPIRIN
  2. TRIGRIM [Concomitant]
     Active Substance: TORSEMIDE
  3. RELIEF [Concomitant]
     Active Substance: WITCH HAZEL
  4. BRILINTA [Suspect]
     Active Substance: TICAGRELOR
     Indication: MYOCARDIAL INFARCTION
     Route: 048
     Dates: start: 20181231
  5. ESPIRO [Concomitant]
     Active Substance: EPLERENONE
  6. ROXERA [Concomitant]
     Active Substance: ROSUVASTATIN CALCIUM
  7. ATORVASTATIN [Concomitant]
     Active Substance: ATORVASTATIN
  8. CONCOR [Concomitant]
     Active Substance: BISOPROLOL FUMARATE
  9. DIROTON [Concomitant]
     Active Substance: LISINOPRIL
  10. BRILINTA [Suspect]
     Active Substance: TICAGRELOR
     Indication: STENT PLACEMENT
     Route: 048
     Dates: start: 20181231

REACTIONS (5)
  - Haemorrhoidal haemorrhage [Not Recovered/Not Resolved]
  - Contusion [Not Recovered/Not Resolved]
  - Ligament rupture [Recovering/Resolving]
  - Traumatic haemorrhage [Unknown]
  - Haemorrhoids [Not Recovered/Not Resolved]

NARRATIVE: CASE EVENT DATE: 2019
